FAERS Safety Report 4430316-4 (Version None)
Quarter: 2004Q3

REPORT INFORMATION
  Report Type: 
  Country: None (occurrence: None)
  Receive Date: 20040809
  Receipt Date: 20040726
  Transmission Date: 20050211
  Serious: No
  Sender: FDA-Public Use
  Company Number: CART-10307

PATIENT
  Age: 45 Year
  Sex: Male

DRUGS (1)
  1. CARTICEL [Suspect]
     Indication: ARTHROPATHY
     Dosage: 1 NA ONCE IS
     Dates: start: 19990714, end: 19990714

REACTIONS (4)
  - ARTHRALGIA [None]
  - CHONDROMALACIA [None]
  - DISEASE RECURRENCE [None]
  - DISSOCIATION [None]
